FAERS Safety Report 20196388 (Version 17)
Quarter: 2022Q3

REPORT INFORMATION
  Report Type: Report from Study
  Country: MX (occurrence: MX)
  Receive Date: 20211216
  Receipt Date: 20220922
  Transmission Date: 20221027
  Serious: Yes (Hospitalization, Disabling, Other)
  Sender: FDA-Public Use
  Company Number: MX-BoehringerIngelheim-2021-BI-132887

PATIENT
  Age: 52 Year
  Sex: Male
  Weight: 90 kg

DRUGS (4)
  1. OFEV [Suspect]
     Active Substance: NINTEDANIB
     Indication: Idiopathic pulmonary fibrosis
     Dosage: 2 EVERY 24 HOURS, 1 IN THE MORNING AND 1 AT NIGHT
     Route: 048
     Dates: start: 20210401
  2. OFEV [Suspect]
     Active Substance: NINTEDANIB
     Route: 048
     Dates: start: 20210901, end: 20211108
  3. OFEV [Suspect]
     Active Substance: NINTEDANIB
     Route: 048
     Dates: start: 20220216
  4. OFEV [Suspect]
     Active Substance: NINTEDANIB
     Route: 048
     Dates: start: 202111, end: 202201

REACTIONS (37)
  - Weight decreased [Unknown]
  - Diarrhoea [Recovered/Resolved]
  - Spinal operation [Not Recovered/Not Resolved]
  - Road traffic accident [Unknown]
  - Fatigue [Unknown]
  - Pneumonitis [Unknown]
  - Weight decreased [Recovered/Resolved]
  - Diarrhoea [Recovered/Resolved]
  - Decreased appetite [Not Recovered/Not Resolved]
  - Nausea [Recovered/Resolved]
  - Abdominal pain upper [Recovered/Resolved]
  - Diarrhoea [Recovered/Resolved]
  - Nausea [Recovered/Resolved]
  - Diarrhoea [Recovered/Resolved]
  - Diarrhoea [Recovered/Resolved]
  - Abdominal pain upper [Not Recovered/Not Resolved]
  - Diarrhoea [Recovered/Resolved]
  - Diarrhoea [Recovered/Resolved]
  - COVID-19 [Recovered/Resolved]
  - Diarrhoea [Not Recovered/Not Resolved]
  - Nausea [Not Recovered/Not Resolved]
  - Cough [Not Recovered/Not Resolved]
  - Fatigue [Not Recovered/Not Resolved]
  - Diarrhoea [Recovered/Resolved]
  - Anxiety [Unknown]
  - Speech disorder [Not Recovered/Not Resolved]
  - Faeces discoloured [Unknown]
  - Diarrhoea [Recovered/Resolved]
  - Swelling [Unknown]
  - Headache [Unknown]
  - Pyrexia [Unknown]
  - Malaise [Unknown]
  - Agitation [Unknown]
  - Cough [Recovered/Resolved]
  - Dehydration [Unknown]
  - Abnormal faeces [Not Recovered/Not Resolved]
  - Illness [Recovered/Resolved]

NARRATIVE: CASE EVENT DATE: 20210901
